FAERS Safety Report 20686771 (Version 1)
Quarter: 2022Q2

REPORT INFORMATION
  Report Type: Spontaneous
  Country: US (occurrence: US)
  Receive Date: 20220407
  Receipt Date: 20220407
  Transmission Date: 20220720
  Serious: No
  Sender: FDA-Public Use
  Company Number: US-SANOFI-01048067

PATIENT
  Age: 52 Year
  Sex: Female

DRUGS (3)
  1. LOVENOX [Suspect]
     Active Substance: ENOXAPARIN SODIUM
     Indication: Aortic thrombosis
     Dosage: 80 MG, BID
     Dates: start: 20220325
  2. WARFARIN [Suspect]
     Active Substance: WARFARIN
     Dosage: UNK
  3. HEPARIN [Concomitant]
     Active Substance: HEPARIN SODIUM

REACTIONS (4)
  - Injection site haemorrhage [Unknown]
  - Anticoagulation drug level below therapeutic [Not Recovered/Not Resolved]
  - Wound haemorrhage [Not Recovered/Not Resolved]
  - Injection site bruising [Unknown]
